FAERS Safety Report 6044954-9 (Version None)
Quarter: 2009Q1

REPORT INFORMATION
  Report Type: 
  Country: None (occurrence: None)
  Receive Date: 20090112
  Receipt Date: 20090112
  Transmission Date: 20090719
  Serious: No
  Sender: FDA-Public Use
  Company Number: None

PATIENT
  Age: 70 Year
  Sex: Male
  Weight: 76.7 kg

DRUGS (1)
  1. VARENICLINE [Suspect]
     Indication: TOBACCO USER
     Dosage: MG PO
     Route: 048
     Dates: start: 20070913, end: 20071213

REACTIONS (1)
  - HEADACHE [None]
